FAERS Safety Report 5784859-1 (Version None)
Quarter: 2008Q2

REPORT INFORMATION
  Report Type: 
  Country: None (occurrence: None)
  Receive Date: 20080619
  Receipt Date: 20080617
  Transmission Date: 20081010
  Serious: Yes (Death, Hospitalization)
  Sender: FDA-Public Use
  Company Number: 2008SP011887

PATIENT
  Age: 69 Year
  Sex: Female
  Weight: 56 kg

DRUGS (6)
  1. TEMODAL [Suspect]
     Indication: LYMPHOMA
     Dosage: 230 MG; QD; PO
     Route: 048
     Dates: start: 20080519, end: 20080523
  2. METHOTREXATE [Suspect]
     Indication: LYMPHOMA
     Dosage: 5.4 GM; QD; IV
     Route: 042
     Dates: start: 20080519, end: 20080602
  3. MEDROL [Concomitant]
  4. LOVENOX [Concomitant]
  5. CACIT D3 [Concomitant]
  6. NEXIUM [Concomitant]

REACTIONS (4)
  - DYSPNOEA [None]
  - HYPERTHERMIA [None]
  - INTESTINAL INFARCTION [None]
  - PLATELET COUNT DECREASED [None]
